FAERS Safety Report 16776101 (Version 1)
Quarter: 2019Q3

REPORT INFORMATION
  Report Type: Spontaneous
  Country: CN (occurrence: CN)
  Receive Date: 20190905
  Receipt Date: 20190905
  Transmission Date: 20191005
  Serious: Yes (Hospitalization)
  Sender: FDA-Public Use
  Company Number: CN-PFIZER INC-2019380360

PATIENT
  Age: 74 Year
  Sex: Male

DRUGS (5)
  1. TYGACIL [Suspect]
     Active Substance: TIGECYCLINE
     Indication: LUNG INFECTION
     Dosage: 200 MG, (FIRST DOSE OF 200 MG)
  2. TYGACIL [Suspect]
     Active Substance: TIGECYCLINE
     Indication: SEPSIS
     Dosage: 100 MG, 2X/DAY (100 MG Q12H IVGTT )
     Route: 041
     Dates: start: 20190726
  3. ISEPAMICIN SULFATE. [Concomitant]
     Active Substance: ISEPAMICIN SULFATE
     Indication: SEPSIS
     Dosage: 0.4 G, 1X/DAY
     Route: 041
     Dates: start: 20190727, end: 20190729
  4. TYGACIL [Suspect]
     Active Substance: TIGECYCLINE
     Dosage: 100 MG, 2X/DAY (100 MG Q12H IVGTT)
     Route: 041
     Dates: start: 20190727, end: 20190807
  5. ISEPAMICIN SULFATE. [Concomitant]
     Active Substance: ISEPAMICIN SULFATE
     Indication: LUNG INFECTION
     Dosage: 0.4 G, 1X/DAY
     Route: 041
     Dates: start: 20190720, end: 20190726

REACTIONS (2)
  - Coagulopathy [Unknown]
  - Off label use [Unknown]

NARRATIVE: CASE EVENT DATE: 20190807
